FAERS Safety Report 23382167 (Version 2)
Quarter: 2024Q1

REPORT INFORMATION
  Report Type: Report from Study
  Country: US (occurrence: US)
  Receive Date: 20240109
  Receipt Date: 20240118
  Transmission Date: 20240410
  Serious: Yes (Other)
  Sender: FDA-Public Use
  Company Number: US-ABBVIE-5575332

PATIENT
  Age: 65 Year
  Sex: Male
  Weight: 63 kg

DRUGS (22)
  1. HUMIRA [Suspect]
     Active Substance: ADALIMUMAB
     Indication: Crohn^s disease
     Route: 058
     Dates: start: 20150517
  2. Osteo Bi-Flex Triple Strength [Concomitant]
     Indication: Hypovitaminosis
     Dosage: 1X PER DAY ,  EVERY MORNING
  3. VITAMIN B12 [Concomitant]
     Active Substance: CYANOCOBALAMIN
     Indication: Hypovitaminosis
     Dosage: 1000MCG ONCE PER DAY,  AS NEEDED
  4. VITAMIN C [Concomitant]
     Active Substance: ASCORBIC ACID
     Indication: Hypovitaminosis
     Dosage: 500MG 2X PER DAY , AS NEEDED
  5. IMODIUM [Concomitant]
     Active Substance: LOPERAMIDE HYDROCHLORIDE
     Indication: Diarrhoea
     Dosage: 1 TABLET AS NEEDED OVER THE COUNTER AS NEEDED
  6. FLOMAX [Concomitant]
     Active Substance: TAMSULOSIN HYDROCHLORIDE
     Indication: Urinary tract disorder
     Dosage: 0 .4 MG,  1X / DAY , EVERY EVENING
  7. MAGNESIUM [Concomitant]
     Active Substance: MAGNESIUM
     Indication: Muscle spasms
     Dosage: 2 X 250MG ONCE PER DAY ,  AS NEEDED
  8. PEPPERMINT OIL [Concomitant]
     Active Substance: PEPPERMINT OIL
     Indication: Gastrointestinal pain
     Dosage: UP TO 3 CAPSULE 30 MIN BEFORE MEALS , MOST DAYS
  9. ONDANSETRON [Concomitant]
     Active Substance: ONDANSETRON
     Indication: Nausea
     Dosage: 4 MG 1 TABLET EVERY 6 HOURS AS NEEDED , AS NEEDED
  10. VITAMIN D3 [Concomitant]
     Active Substance: CHOLECALCIFEROL
     Indication: Hypovitaminosis
     Dosage: 2 X 1000 IU PER DAY
  11. RIZATRIPTAN [Concomitant]
     Active Substance: RIZATRIPTAN
     Indication: Migraine
     Dosage: 10 MG ODT 1 TAB EVERY 12 HOURS AS NEEDED , AS NEEDED
  12. IRON [Concomitant]
     Active Substance: IRON
     Indication: Hypovitaminosis
     Dosage: 2 X 325 MG PER DAY , AS NEEDED
  13. ZINC [Concomitant]
     Active Substance: PYRITHIONE ZINC\ZINC\ZINC CHLORIDE
     Indication: Hypovitaminosis
     Dosage: 50 MG PER DAY , AS NEEDED
  14. TRAMADOL HCL [Concomitant]
     Active Substance: TRAMADOL HYDROCHLORIDE
     Indication: Abdominal pain
     Dosage: 50 MG TABLET 1-2 TABLETS EVERY 6 HOURS FOR PAIN ,  AS NEEDED
  15. VITAMIN E [Concomitant]
     Active Substance: .ALPHA.-TOCOPHEROL
     Indication: Hypovitaminosis
     Dosage: 2 X 400 IU PER DAY, MORN / EVEN
  16. MELATONIN [Concomitant]
     Active Substance: MELATONIN
     Indication: Sleep disorder
     Dosage: 5MG ONCE IN EVENING,  MOST DAYS
  17. HYDROMORPHONE [Concomitant]
     Active Substance: HYDROMORPHONE
     Indication: Abdominal pain
     Dosage: 2 MG UP TO 4 MG EVERY 6 HOURS ,  AS NEEDED
  18. ELIQUIS [Concomitant]
     Active Substance: APIXABAN
     Indication: Thrombosis
  19. TYLENOL [Concomitant]
     Active Substance: ACETAMINOPHEN
     Indication: Headache
     Dosage: 500 MG TABLET OVER THE COUNTER AS NEEDED
  20. FOLIC ACID [Concomitant]
     Active Substance: FOLIC ACID
     Indication: Hypovitaminosis
     Dosage: 800MCG ONCE PER DAY ,  AS NEEDED
  21. ZOFRAN [Concomitant]
     Active Substance: ONDANSETRON HYDROCHLORIDE
     Indication: Product used for unknown indication
  22. ACETAMINOPHEN [Concomitant]
     Active Substance: ACETAMINOPHEN
     Indication: Product used for unknown indication

REACTIONS (1)
  - Crohn^s disease [Not Recovered/Not Resolved]

NARRATIVE: CASE EVENT DATE: 20190212
